FAERS Safety Report 15669794 (Version 3)
Quarter: 2022Q1

REPORT INFORMATION
  Report Type: Report from Study
  Country: CA (occurrence: CA)
  Receive Date: 20181129
  Receipt Date: 20220314
  Transmission Date: 20220424
  Serious: Yes (Hospitalization, Other)
  Sender: FDA-Public Use
  Company Number: CA-TAKEDA-2017TUS027211

PATIENT
  Age: 84 Year
  Sex: Male

DRUGS (7)
  1. PANTOPRAZOLE SODIUM [Suspect]
     Active Substance: PANTOPRAZOLE SODIUM
     Dosage: 40 MILLIGRAM, QD
     Route: 065
  2. ENTYVIO [Suspect]
     Active Substance: VEDOLIZUMAB
     Indication: Colitis ulcerative
     Dosage: 300 MG, UNK
     Route: 042
     Dates: start: 20170216
  3. ENTYVIO [Suspect]
     Active Substance: VEDOLIZUMAB
     Dosage: 300 MG, UNK
     Route: 042
  4. ENTYVIO [Suspect]
     Active Substance: VEDOLIZUMAB
     Dosage: 300 MG, UNK
     Route: 042
  5. ENTYVIO [Suspect]
     Active Substance: VEDOLIZUMAB
     Dosage: 300 MG, UNK
     Route: 042
  6. PREDNISONE [Concomitant]
     Active Substance: PREDNISONE
     Dosage: 30 MILLIGRAM, QD
  7. VITAMIN D NOS [Concomitant]
     Active Substance: VITAMIN D NOS
     Dosage: 10000 INTERNATIONAL UNIT, 1/WEEK

REACTIONS (4)
  - Localised infection [Not Recovered/Not Resolved]
  - Knee operation [Unknown]
  - Oedema peripheral [Not Recovered/Not Resolved]
  - Blood pressure increased [Unknown]

NARRATIVE: CASE EVENT DATE: 20181109
